FAERS Safety Report 5738284-X (Version None)
Quarter: 2008Q2

REPORT INFORMATION
  Report Type: 
  Country: None (occurrence: None)
  Receive Date: 20080514
  Receipt Date: 20080507
  Transmission Date: 20081010
  Serious: Yes (Hospitalization)
  Sender: FDA-Public Use
  Company Number: US-PFIZER INC-2008039836

PATIENT
  Sex: Male
  Weight: 77.272 kg

DRUGS (3)
  1. VIAGRA [Suspect]
     Indication: ERECTILE DYSFUNCTION
     Route: 048
  2. ZOCOR [Concomitant]
  3. NEXIUM [Concomitant]

REACTIONS (1)
  - PROSTATIC DISORDER [None]
